FAERS Safety Report 22247062 (Version 1)
Quarter: 2023Q2

REPORT INFORMATION
  Report Type: Spontaneous
  Country: TR (occurrence: TR)
  Receive Date: 20230424
  Receipt Date: 20230424
  Transmission Date: 20230722
  Serious: Yes (Hospitalization, Other)
  Sender: FDA-Public Use
  Company Number: TR-PFIZER INC-202101233162

PATIENT
  Sex: Male
  Weight: 1 kg

DRUGS (2)
  1. AVIBACTAM SODIUM\CEFTAZIDIME [Suspect]
     Active Substance: AVIBACTAM SODIUM\CEFTAZIDIME
     Indication: Urinary tract infection
     Dosage: 50 MG/KG, 3X/DAY (CEFTAZIDIME 40 MG/KG AND AVIBACTAM 10 MG/KG) EVERY 8 HOURS)
  2. AVIBACTAM SODIUM\CEFTAZIDIME [Suspect]
     Active Substance: AVIBACTAM SODIUM\CEFTAZIDIME
     Indication: Klebsiella infection

REACTIONS (3)
  - Renal glycosuria [Recovered/Resolved]
  - Renal tubular dysfunction [Recovered/Resolved]
  - Off label use [Unknown]
